FAERS Safety Report 6669708-1 (Version None)
Quarter: 2010Q2

REPORT INFORMATION
  Report Type: 
  Country: None (occurrence: None)
  Receive Date: 20100402
  Receipt Date: 20100324
  Transmission Date: 20101027
  Serious: Yes (Hospitalization)
  Sender: FDA-Public Use
  Company Number: 230590J10BRA

PATIENT
  Age: 44 Year
  Sex: Female

DRUGS (5)
  1. REBIF [Suspect]
     Indication: RELAPSING-REMITTING MULTIPLE SCLEROSIS
     Dosage: 44 MCG, 3 IN 1 WEEKS, SUBCUTANEOUS ; 22 MCG, 3 IN 1 WEEKS
     Route: 058
     Dates: start: 20071210, end: 20100203
  2. REBIF [Suspect]
     Indication: RELAPSING-REMITTING MULTIPLE SCLEROSIS
     Dosage: 44 MCG, 3 IN 1 WEEKS, SUBCUTANEOUS ; 22 MCG, 3 IN 1 WEEKS
     Route: 058
     Dates: start: 20100203
  3. TYLENOL [Concomitant]
  4. DEPAKENE [Concomitant]
  5. FONTI B1 (THIAMINE HYDROCHLORIDE (THIAMINE HYDROCHLORIDE) [Concomitant]

REACTIONS (3)
  - FAECAL INCONTINENCE [None]
  - MUSCULAR WEAKNESS [None]
  - URINARY INCONTINENCE [None]
